FAERS Safety Report 12835762 (Version 2)
Quarter: 2016Q4

REPORT INFORMATION
  Report Type: Report from Study
  Country: CA (occurrence: CA)
  Receive Date: 20161011
  Receipt Date: 20161223
  Transmission Date: 20170207
  Serious: Yes (Other)
  Sender: FDA-Public Use
  Company Number: CA-BEH-2016074095

PATIENT
  Age: 72 Year
  Sex: Female

DRUGS (2)
  1. HIZENTRA [Suspect]
     Active Substance: HUMAN IMMUNOGLOBULIN G
     Dosage: 12 G, QW
     Route: 058
     Dates: start: 2016
  2. HIZENTRA [Suspect]
     Active Substance: HUMAN IMMUNOGLOBULIN G
     Indication: PRIMARY IMMUNODEFICIENCY SYNDROME
     Dosage: 8 G, QW
     Route: 058
     Dates: start: 20140424

REACTIONS (12)
  - Nephrolithiasis [Unknown]
  - Adrenal disorder [Unknown]
  - Lipase increased [Unknown]
  - Abdominal pain [Unknown]
  - Nasopharyngitis [Unknown]
  - Infusion site pain [Unknown]
  - Diarrhoea [Unknown]
  - Malaise [Unknown]
  - Pericarditis [Unknown]
  - Fall [Unknown]
  - Mesenteric vascular insufficiency [Unknown]
  - Amylase increased [Unknown]

NARRATIVE: CASE EVENT DATE: 2016
